FAERS Safety Report 6197664-1 (Version None)
Quarter: 2009Q2

REPORT INFORMATION
  Report Type: 
  Country: None (occurrence: None)
  Receive Date: 20090521
  Receipt Date: 20090511
  Transmission Date: 20091009
  Serious: Yes (Other)
  Sender: FDA-Public Use
  Company Number: AU-BRISTOL-MYERS SQUIBB COMPANY-14303820

PATIENT

DRUGS (1)
  1. ENTECAVIR [Suspect]
     Dosage: DOSE INCREASED TO 1 MG

REACTIONS (1)
  - VIROLOGIC FAILURE [None]
